FAERS Safety Report 8903782 (Version 1)
Quarter: 2012Q4

REPORT INFORMATION
  Report Type: 
  Country: AU (occurrence: AU)
  Receive Date: 20121113
  Receipt Date: 20121113
  Transmission Date: 20130627
  Serious: Yes (Death)
  Sender: FDA-Public Use
  Company Number: AU-OTSUKA-US-2012-11653

PATIENT
  Sex: Female

DRUGS (3)
  1. BUSULFEX [Suspect]
  2. CYCLOPHOSPHAMIDE [Suspect]
  3. FLAGYL [Suspect]

REACTIONS (3)
  - Venoocclusive liver disease [Fatal]
  - Drug interaction [Fatal]
  - Toxicity to various agents [Fatal]
